FAERS Safety Report 7149401-1 (Version None)
Quarter: 2010Q4

REPORT INFORMATION
  Report Type: 
  Country: None (occurrence: None)
  Receive Date: 20101209
  Receipt Date: 20101203
  Transmission Date: 20110411
  Serious: Yes (Other)
  Sender: FDA-Public Use
  Company Number: US-B.I. PHARMACEUTICALS,INC./RIDGEFIELD-2010-BP-13688BP

PATIENT
  Age: 74 Year
  Sex: Male

DRUGS (1)
  1. AGGRENOX [Suspect]
     Indication: CEREBROVASCULAR ACCIDENT PROPHYLAXIS
     Dosage: 50/400MG
     Route: 048
     Dates: start: 20070101, end: 20101202

REACTIONS (2)
  - HEPATIC NEOPLASM MALIGNANT [None]
  - MYASTHENIA GRAVIS [None]
